FAERS Safety Report 21663225 (Version 1)
Quarter: 2022Q4

REPORT INFORMATION
  Report Type: Spontaneous
  Country: US (occurrence: None)
  Receive Date: 20221129
  Receipt Date: 20221129
  Transmission Date: 20230113
  Serious: No
  Sender: FDA-Public Use
  Company Number: None

PATIENT
  Sex: Female

DRUGS (4)
  1. AMBRISENTAN [Suspect]
     Active Substance: AMBRISENTAN
     Indication: Pulmonary arterial hypertension
     Dosage: FREQUENCY : DAILY;?
     Route: 048
  2. TYLENOL [Concomitant]
     Active Substance: ACETAMINOPHEN
  3. BENGAY LIDOCAINE [Concomitant]
  4. TADALAFIL [Suspect]
     Active Substance: TADALAFIL

REACTIONS (2)
  - Fall [None]
  - Ligament sprain [None]
